FAERS Safety Report 12039455 (Version 1)
Quarter: 2016Q1

REPORT INFORMATION
  Report Type: Spontaneous
  Country: US (occurrence: None)
  Receive Date: 20160205
  Receipt Date: 20160205
  Transmission Date: 20160526
  Serious: Yes (Other)
  Sender: FDA-Public Use
  Company Number: None

PATIENT
  Age: 59 Year
  Sex: Female

DRUGS (1)
  1. CHLORAPREP [Suspect]
     Active Substance: CHLORHEXIDINE GLUCONATE\ISOPROPYL ALCOHOL
     Indication: PREOPERATIVE CARE

REACTIONS (4)
  - Application site vesicles [None]
  - Exposure to extreme temperature [None]
  - Application site burn [None]
  - Drug monitoring procedure not performed [None]

NARRATIVE: CASE EVENT DATE: 20151015
